FAERS Safety Report 22155320 (Version 1)
Quarter: 2023Q1

REPORT INFORMATION
  Report Type: Spontaneous
  Country: CN (occurrence: CN)
  Receive Date: 20230330
  Receipt Date: 20230330
  Transmission Date: 20230418
  Serious: Yes (Other)
  Sender: FDA-Public Use
  Company Number: CN-009507513-2303CHN010287

PATIENT
  Age: 72 Year
  Sex: Male

DRUGS (2)
  1. KEYTRUDA [Suspect]
     Active Substance: PEMBROLIZUMAB
     Indication: Gastric cancer
     Dosage: 400 MILLIGRAM (MG), ONCE
     Route: 041
     Dates: start: 20230131, end: 20230131
  2. LENVATINIB MESYLATE [Suspect]
     Active Substance: LENVATINIB MESYLATE
     Indication: Gastric cancer
     Dosage: 20 MILLIGRAM (MG), ONCE DAILY (QD)
     Route: 048
     Dates: start: 20230109, end: 20230131

REACTIONS (3)
  - Chemotherapy [Unknown]
  - Pain of skin [Recovering/Resolving]
  - Product use in unapproved indication [Unknown]

NARRATIVE: CASE EVENT DATE: 20230101
